FAERS Safety Report 9726420 (Version 1)
Quarter: 2013Q4

REPORT INFORMATION
  Report Type: Spontaneous
  Country: GB (occurrence: None)
  Receive Date: 20131129
  Receipt Date: 20131129
  Transmission Date: 20140711
  Serious: Yes (Other)
  Sender: FDA-Public Use
  Company Number: AUR-APL-2013-09753

PATIENT
  Age: 74 Year
  Sex: Female

DRUGS (1)
  1. AMOXICILLIN (AMOXICILLIN) [Suspect]
     Indication: PRODUCT USED FOR UNKNOWN INDICATION
     Dates: start: 20131106

REACTIONS (2)
  - Swelling face [None]
  - Erythema [None]
